FAERS Safety Report 4709690-7 (Version None)
Quarter: 2005Q3

REPORT INFORMATION
  Report Type: 
  Country: None (occurrence: None)
  Receive Date: 20050707
  Receipt Date: 20050621
  Transmission Date: 20060218
  Serious: Yes (Other)
  Sender: FDA-Public Use
  Company Number: USA050699499

PATIENT
  Sex: Female

DRUGS (3)
  1. FORTEO [Suspect]
     Indication: OSTEOPOROSIS
     Dates: start: 20050526
  2. TYLENOL [Concomitant]
  3. METHOTREXATE [Concomitant]

REACTIONS (7)
  - BACK PAIN [None]
  - BLOOD PRESSURE INCREASED [None]
  - FATIGUE [None]
  - HEADACHE [None]
  - MUSCLE SPASMS [None]
  - MYALGIA [None]
  - PAIN [None]
